FAERS Safety Report 22258760 (Version 1)
Quarter: 2023Q2

REPORT INFORMATION
  Report Type: Spontaneous
  Country: GB (occurrence: GB)
  Receive Date: 20230427
  Receipt Date: 20230427
  Transmission Date: 20230721
  Serious: Yes (Other)
  Sender: FDA-Public Use
  Company Number: None

PATIENT
  Age: 44 Year
  Sex: Female

DRUGS (1)
  1. CLOPIDOGREL [Suspect]
     Active Substance: CLOPIDOGREL BISULFATE
     Indication: Transient ischaemic attack
     Dosage: UNKNOWN
     Route: 065
     Dates: start: 20230104, end: 20230401

REACTIONS (4)
  - Depression [Recovered/Resolved]
  - Crying [Unknown]
  - Depressed mood [Unknown]
  - Self-injurious ideation [Unknown]

NARRATIVE: CASE EVENT DATE: 20230104
